FAERS Safety Report 14759376 (Version 21)
Quarter: 2025Q3

REPORT INFORMATION
  Report Type: Spontaneous
  Country: EU (occurrence: EU)
  Receive Date: 20180413
  Receipt Date: 20250728
  Transmission Date: 20251021
  Serious: Yes (Hospitalization, Other)
  Sender: Haleon PLC
  Company Number: EU-002147023-PHHY2018DE061478

PATIENT
  Age: 82 Year
  Sex: Female
  Weight: 56 kg

DRUGS (266)
  1. DICLOFENAC SODIUM [Suspect]
     Active Substance: DICLOFENAC SODIUM
     Indication: Product used for unknown indication
     Dosage: 2 DF, QD, 2 DOSAGE FORM, QD
  2. DICLOFENAC SODIUM [Suspect]
     Active Substance: DICLOFENAC SODIUM
     Dosage: 2 DF, QD, 2 DOSAGE FORM, QD
  3. FENTANYL TRANSDERMAL SYSTEM [Suspect]
     Active Substance: FENTANYL
     Indication: Product used for unknown indication
     Dosage: 75 MICROGRAM/HOUR AND PLASTER CHANGE EVERY 3 DAYS
     Route: 062
  4. FENTANYL TRANSDERMAL SYSTEM [Suspect]
     Active Substance: FENTANYL
     Route: 062
  5. FOLIC ACID [Concomitant]
     Active Substance: FOLIC ACID
     Indication: Product used for unknown indication
     Dates: start: 20170124
  6. FOLIC ACID [Concomitant]
     Active Substance: FOLIC ACID
     Indication: Product used for unknown indication
  7. FOLIC ACID [Concomitant]
     Active Substance: FOLIC ACID
  8. ENOXAPARIN [Concomitant]
     Active Substance: ENOXAPARIN
     Indication: Product used for unknown indication
     Dosage: 0.6 MG, QD
  9. ASPIRIN [Suspect]
     Active Substance: ASPIRIN
     Indication: Product used for unknown indication
     Route: 048
  10. DICLOFENAC [Suspect]
     Active Substance: DICLOFENAC
     Indication: Product used for unknown indication
     Dosage: UNK, QD?FIRST AND LAST ADMIN DATE: 2016-10?ROUTE: UNKNOWN
  11. DICLOFENAC [Suspect]
     Active Substance: DICLOFENAC
     Dosage: 2 DF, QD, 2 DOSAGE FORM, QD?FIRST AND LAST ADMIN DATE: 2016-10?ROUTE: UNKNOWN
  12. DICLOFENAC [Suspect]
     Active Substance: DICLOFENAC
     Dosage: UNK, QD?FIRST AND LAST ADMIN DATE: 2016-10?ROUTE: UNKNOWN
  13. DICLOFENAC [Suspect]
     Active Substance: DICLOFENAC
     Dosage: UNK, QD?FIRST AND LAST ADMIN DATE: 2016-10?ROUTE: UNKNOWN
  14. XIPAMIDE [Suspect]
     Active Substance: XIPAMIDE
     Indication: Product used for unknown indication
     Dates: start: 20170124, end: 20170124
  15. XIPAMIDE [Suspect]
     Active Substance: XIPAMIDE
  16. XIPAMIDE [Suspect]
     Active Substance: XIPAMIDE
  17. LOSARTAN POTASSIUM [Suspect]
     Active Substance: LOSARTAN POTASSIUM
     Indication: Product used for unknown indication
     Dosage: 1 DOSAGE FORM, QD, QD (UNITS: UNKNOWN), DAILY, FIRST ADMINISTRATION DATE 2016
  18. LOSARTAN POTASSIUM [Suspect]
     Active Substance: LOSARTAN POTASSIUM
  19. LOSARTAN POTASSIUM [Suspect]
     Active Substance: LOSARTAN POTASSIUM
  20. TORSEMIDE [Suspect]
     Active Substance: TORSEMIDE
     Indication: Product used for unknown indication
     Dosage: 15 MG, QD, FIRST AND LAST ADMINISTRATION DATE 24 JAN 2017
  21. TORSEMIDE [Suspect]
     Active Substance: TORSEMIDE
     Dosage: 5 MG, QD, FIRST AND LAST ADMINISTRATION DATE 24 JAN 2017
  22. TORSEMIDE [Suspect]
     Active Substance: TORSEMIDE
     Dosage: 5 MG, QD
  23. TORSEMIDE [Suspect]
     Active Substance: TORSEMIDE
     Dosage: 15 MG, QD, FIRST AND LAST ADMINISTRATION DATE 24 JAN 2017
  24. TORSEMIDE [Suspect]
     Active Substance: TORSEMIDE
  25. TORSEMIDE [Suspect]
     Active Substance: TORSEMIDE
     Dosage: 45 MG, QD, FIRST AND LAST ADMINISTRATION DATE 24 JAN 2017
     Dates: start: 20170124, end: 20170124
  26. TORSEMIDE [Suspect]
     Active Substance: TORSEMIDE
     Dosage: 5 MG, QD FIRST AND LAST ADMINISTRATION DATE 24 JAN 2017
  27. AMIODARONE HYDROCHLORIDE [Suspect]
     Active Substance: AMIODARONE HYDROCHLORIDE
     Indication: Product used for unknown indication
  28. AMIODARONE HYDROCHLORIDE [Suspect]
     Active Substance: AMIODARONE HYDROCHLORIDE
  29. CLOPIDOGREL [Suspect]
     Active Substance: CLOPIDOGREL BISULFATE
     Indication: Product used for unknown indication
  30. CLOPIDOGREL [Suspect]
     Active Substance: CLOPIDOGREL BISULFATE
     Route: 048
  31. CLOPIDOGREL [Suspect]
     Active Substance: CLOPIDOGREL BISULFATE
     Route: 048
  32. CLOPIDOGREL [Suspect]
     Active Substance: CLOPIDOGREL BISULFATE
     Route: 048
  33. CLOPIDOGREL [Suspect]
     Active Substance: CLOPIDOGREL BISULFATE
  34. CLOPIDOGREL [Suspect]
     Active Substance: CLOPIDOGREL BISULFATE
     Route: 048
  35. CLOPIDOGREL [Suspect]
     Active Substance: CLOPIDOGREL BISULFATE
  36. CLOPIDOGREL [Suspect]
     Active Substance: CLOPIDOGREL BISULFATE
     Route: 048
  37. CLOPIDOGREL [Suspect]
     Active Substance: CLOPIDOGREL BISULFATE
  38. CLOPIDOGREL [Suspect]
     Active Substance: CLOPIDOGREL BISULFATE
  39. CLOPIDOGREL [Suspect]
     Active Substance: CLOPIDOGREL BISULFATE
     Route: 048
  40. CLOPIDOGREL [Suspect]
     Active Substance: CLOPIDOGREL BISULFATE
     Route: 048
  41. CLOPIDOGREL [Suspect]
     Active Substance: CLOPIDOGREL BISULFATE
  42. CLOPIDOGREL [Suspect]
     Active Substance: CLOPIDOGREL BISULFATE
     Route: 048
     Dates: end: 20170124
  43. CLOPIDOGREL [Suspect]
     Active Substance: CLOPIDOGREL BISULFATE
  44. CLOPIDOGREL [Suspect]
     Active Substance: CLOPIDOGREL BISULFATE
     Route: 048
  45. CLOPIDOGREL [Suspect]
     Active Substance: CLOPIDOGREL BISULFATE
     Dates: end: 20170124
  46. CLOPIDOGREL [Suspect]
     Active Substance: CLOPIDOGREL BISULFATE
     Dates: end: 20170124
  47. CLOPIDOGREL [Suspect]
     Active Substance: CLOPIDOGREL BISULFATE
     Route: 048
  48. CLOPIDOGREL [Suspect]
     Active Substance: CLOPIDOGREL BISULFATE
     Dates: end: 20170124
  49. CLOPIDOGREL [Suspect]
     Active Substance: CLOPIDOGREL BISULFATE
     Route: 048
  50. LEVOSIMENDAN [Concomitant]
     Active Substance: LEVOSIMENDAN
     Indication: Product used for unknown indication
  51. LEVOSIMENDAN [Concomitant]
     Active Substance: LEVOSIMENDAN
  52. LEVOSIMENDAN [Concomitant]
     Active Substance: LEVOSIMENDAN
  53. LEVOSIMENDAN [Concomitant]
     Active Substance: LEVOSIMENDAN
  54. LEVOSIMENDAN [Concomitant]
     Active Substance: LEVOSIMENDAN
  55. LEVOSIMENDAN [Concomitant]
     Active Substance: LEVOSIMENDAN
  56. LEVOSIMENDAN [Concomitant]
     Active Substance: LEVOSIMENDAN
  57. LEVOSIMENDAN [Concomitant]
     Active Substance: LEVOSIMENDAN
  58. LEVOSIMENDAN [Concomitant]
     Active Substance: LEVOSIMENDAN
  59. LEVOSIMENDAN [Concomitant]
     Active Substance: LEVOSIMENDAN
  60. LEVOSIMENDAN [Concomitant]
     Active Substance: LEVOSIMENDAN
  61. LEVOSIMENDAN [Concomitant]
     Active Substance: LEVOSIMENDAN
  62. TROSPIUM CHLORIDE [Suspect]
     Active Substance: TROSPIUM CHLORIDE
     Indication: Product used for unknown indication
     Dates: start: 20170124
  63. TROSPIUM CHLORIDE [Suspect]
     Active Substance: TROSPIUM CHLORIDE
     Dosage: 15 MG, QD?ROUTE: UNKNOWN, FIRST ADMINISTRATION DATE 24 JAN 2017
     Dates: start: 20170124
  64. TROSPIUM CHLORIDE [Suspect]
     Active Substance: TROSPIUM CHLORIDE
     Indication: Product used for unknown indication
     Dosage: 45 MG, QD
     Dates: start: 20170124, end: 20170124
  65. TROSPIUM CHLORIDE [Suspect]
     Active Substance: TROSPIUM CHLORIDE
  66. TROSPIUM CHLORIDE [Suspect]
     Active Substance: TROSPIUM CHLORIDE
     Dosage: 15 MG, QD
     Dates: start: 20170124, end: 20170124
  67. RIOPAN [Concomitant]
     Indication: Product used for unknown indication
     Dosage: DAILY DOSE: 4800 MG MILLGRAM(S) EVERY DAYS
     Route: 048
  68. CANDESARTAN CILEXETIL\HYDROCHLOROTHIAZIDE [Suspect]
     Active Substance: CANDESARTAN CILEXETIL\HYDROCHLOROTHIAZIDE
     Indication: Product used for unknown indication
     Dosage: 1 DOSAGE FORM, QD?ROUTE: UNKNOWN
  69. PANTOPRAZOLE [Suspect]
     Active Substance: PANTOPRAZOLE
     Indication: Product used for unknown indication
     Dosage: 20 MG, QD
  70. PANTOPRAZOLE [Suspect]
     Active Substance: PANTOPRAZOLE
     Indication: Product used for unknown indication
  71. PANTOPRAZOLE [Suspect]
     Active Substance: PANTOPRAZOLE
     Indication: Product used for unknown indication
     Dosage: 20 MG, QD
  72. PANTOPRAZOLE [Suspect]
     Active Substance: PANTOPRAZOLE
     Dosage: 20 MG, QD
  73. PANTOPRAZOLE [Suspect]
     Active Substance: PANTOPRAZOLE
     Dosage: 20 MG, QD
  74. PANTOPRAZOLE [Suspect]
     Active Substance: PANTOPRAZOLE
     Dosage: 20 MG, QD
  75. EDOXABAN TOSYLATE [Suspect]
     Active Substance: EDOXABAN TOSYLATE
     Indication: Atrial fibrillation
     Dosage: 30 MG, QD DAILY?ROUTE: UNKNOWN
     Dates: start: 20160930
  76. EDOXABAN TOSYLATE [Suspect]
     Active Substance: EDOXABAN TOSYLATE
     Dosage: 30 MG, QD DAILY?ROUTE: UNKNOWN, FIRST ADMINISTRATION DATE 30SEP2016
  77. EDOXABAN TOSYLATE [Suspect]
     Active Substance: EDOXABAN TOSYLATE
     Dosage: 30 MILLIGRAM, QD?ROUTE: UNKNOWN
  78. EDOXABAN TOSYLATE [Suspect]
     Active Substance: EDOXABAN TOSYLATE
     Dosage: 30 MG, QD?ROUTE: UNKNOWN,  FIRST ADMINISTRATION DATE 30SEP2016
  79. ASPIRIN [Suspect]
     Active Substance: ASPIRIN
     Indication: Product used for unknown indication
  80. ASPIRIN [Suspect]
     Active Substance: ASPIRIN
  81. HYDROCHLOROTHIAZIDE\LOSARTAN [Suspect]
     Active Substance: HYDROCHLOROTHIAZIDE\LOSARTAN
     Indication: Product used for unknown indication
     Dosage: 1 DOSAGE FORM, QD, (100/25 MG)?START DATE: 2016?ROUTE: UNKNOWN
     Dates: start: 2016
  82. PREDNISOLONE [Suspect]
     Active Substance: PREDNISOLONE
     Indication: Product used for unknown indication
  83. PREDNISOLONE [Suspect]
     Active Substance: PREDNISOLONE
  84. TORSEMIDE [Suspect]
     Active Substance: TORSEMIDE
     Indication: Product used for unknown indication
     Dosage: 5 MILLIGRAM, QD?ROUTE: UNKNOWN
  85. TORSEMIDE [Suspect]
     Active Substance: TORSEMIDE
     Dosage: 15 MG, QD?ROUTE: UNKNOWN, FIRST AND LAST ADMINISTRATION DATE 24 JAN 2017
  86. TORSEMIDE [Suspect]
     Active Substance: TORSEMIDE
     Dosage: 5 MILLIGRAM, QD?ROUTE: UNKNOWN, FIRST AND LAST ADMINISTRATION DATE 24 JAN 2017
  87. TORSEMIDE [Suspect]
     Active Substance: TORSEMIDE
     Dosage: 15 MILLIGRAM, QD?ROUTE: UNKNOWN
  88. TORSEMIDE [Suspect]
     Active Substance: TORSEMIDE
     Dosage: 45 MG, QD, FIRST AND LAST ADMINISTRATION DATE 24 JAN 2017
     Route: 048
  89. HYDROCHLOROTHIAZIDE\LOSARTAN [Suspect]
     Active Substance: HYDROCHLOROTHIAZIDE\LOSARTAN
     Indication: Product used for unknown indication
  90. MOVICOL [Suspect]
     Active Substance: POLYETHYLENE GLYCOL 3350\POTASSIUM CHLORIDE\SODIUM BICARBONATE\SODIUM CHLORIDE
     Indication: Product used for unknown indication
     Dates: start: 20170124
  91. MOVICOL [Suspect]
     Active Substance: POLYETHYLENE GLYCOL 3350\POTASSIUM CHLORIDE\SODIUM BICARBONATE\SODIUM CHLORIDE
  92. MOVICOL [Suspect]
     Active Substance: POLYETHYLENE GLYCOL 3350\POTASSIUM CHLORIDE\SODIUM BICARBONATE\SODIUM CHLORIDE
  93. MOVICOL [Suspect]
     Active Substance: POLYETHYLENE GLYCOL 3350\POTASSIUM CHLORIDE\SODIUM BICARBONATE\SODIUM CHLORIDE
  94. MOVICOL [Suspect]
     Active Substance: POLYETHYLENE GLYCOL 3350\POTASSIUM CHLORIDE\SODIUM BICARBONATE\SODIUM CHLORIDE
  95. MOVICOL [Suspect]
     Active Substance: POLYETHYLENE GLYCOL 3350\POTASSIUM CHLORIDE\SODIUM BICARBONATE\SODIUM CHLORIDE
  96. MOVICOL [Suspect]
     Active Substance: POLYETHYLENE GLYCOL 3350\POTASSIUM CHLORIDE\SODIUM BICARBONATE\SODIUM CHLORIDE
  97. MOVICOL [Suspect]
     Active Substance: POLYETHYLENE GLYCOL 3350\POTASSIUM CHLORIDE\SODIUM BICARBONATE\SODIUM CHLORIDE
  98. MOVICOL [Suspect]
     Active Substance: POLYETHYLENE GLYCOL 3350\POTASSIUM CHLORIDE\SODIUM BICARBONATE\SODIUM CHLORIDE
  99. MOVICOL [Suspect]
     Active Substance: POLYETHYLENE GLYCOL 3350\POTASSIUM CHLORIDE\SODIUM BICARBONATE\SODIUM CHLORIDE
  100. SIMVASTATIN [Suspect]
     Active Substance: SIMVASTATIN
     Indication: Product used for unknown indication
  101. MAGALDRATE [Concomitant]
     Active Substance: MAGALDRATE
     Indication: Product used for unknown indication
  102. MAGALDRATE [Concomitant]
     Active Substance: MAGALDRATE
  103. MAGALDRATE [Concomitant]
     Active Substance: MAGALDRATE
  104. MAGALDRATE [Concomitant]
     Active Substance: MAGALDRATE
  105. MAGALDRATE [Concomitant]
     Active Substance: MAGALDRATE
  106. MAGALDRATE [Concomitant]
     Active Substance: MAGALDRATE
  107. MAGALDRATE [Concomitant]
     Active Substance: MAGALDRATE
     Dosage: 1600 MG, QD
  108. MAGALDRATE [Concomitant]
     Active Substance: MAGALDRATE
  109. MAGALDRATE [Concomitant]
     Active Substance: MAGALDRATE
     Dosage: 4800 MILLIGRAM, QD
  110. MAGALDRATE [Concomitant]
     Active Substance: MAGALDRATE
  111. MAGALDRATE [Concomitant]
     Active Substance: MAGALDRATE
  112. CHOLECALCIFEROL [Suspect]
     Active Substance: CHOLECALCIFEROL
     Indication: Product used for unknown indication
     Dosage: 20000 IU, QW?ROUTE: UNKNOWN
  113. CHOLECALCIFEROL [Suspect]
     Active Substance: CHOLECALCIFEROL
     Dosage: 20000 IU, QW?ROUTE: UNKNOWN
  114. CLOPIDOGREL BISULFATE [Suspect]
     Active Substance: CLOPIDOGREL BISULFATE
     Indication: Product used for unknown indication
     Route: 048
     Dates: start: 20170124, end: 20170124
  115. CLOPIDOGREL BISULFATE [Suspect]
     Active Substance: CLOPIDOGREL BISULFATE
     Route: 048
  116. CLOPIDOGREL BISULFATE [Suspect]
     Active Substance: CLOPIDOGREL BISULFATE
     Route: 048
  117. CLOPIDOGREL BISULFATE [Suspect]
     Active Substance: CLOPIDOGREL BISULFATE
     Route: 048
  118. CLOPIDOGREL BISULFATE [Suspect]
     Active Substance: CLOPIDOGREL BISULFATE
     Route: 048
  119. CLOPIDOGREL BISULFATE [Suspect]
     Active Substance: CLOPIDOGREL BISULFATE
     Route: 048
  120. CLOPIDOGREL BISULFATE [Suspect]
     Active Substance: CLOPIDOGREL BISULFATE
     Route: 048
  121. CLOPIDOGREL BISULFATE [Suspect]
     Active Substance: CLOPIDOGREL BISULFATE
     Route: 048
  122. FUROSEMIDE\SPIRONOLACTONE [Suspect]
     Active Substance: FUROSEMIDE\SPIRONOLACTONE
     Indication: Product used for unknown indication
  123. FUROSEMIDE\SPIRONOLACTONE [Suspect]
     Active Substance: FUROSEMIDE\SPIRONOLACTONE
     Dosage: UNK UNK, QD (50MG/20MG)?ROUTE: UNKNOWN?FIRST ADMIN DATE: 2016
  124. FUROSEMIDE\SPIRONOLACTONE [Suspect]
     Active Substance: FUROSEMIDE\SPIRONOLACTONE
     Dosage: UNK UNK, QD (50MG/20MG)?ROUTE: UNKNOWN?FIRST AND LAST ADMIN DATE: 2016-10
  125. LACTULOSE [Suspect]
     Active Substance: LACTULOSE
     Indication: Product used for unknown indication
     Dates: start: 20170124, end: 20170124
  126. LACTULOSE [Suspect]
     Active Substance: LACTULOSE
  127. LACTULOSE [Suspect]
     Active Substance: LACTULOSE
     Dates: end: 20170124
  128. LACTULOSE [Suspect]
     Active Substance: LACTULOSE
     Dates: end: 20170124
  129. LACTULOSE [Suspect]
     Active Substance: LACTULOSE
     Dates: end: 20170124
  130. LACTULOSE [Suspect]
     Active Substance: LACTULOSE
  131. LACTULOSE [Suspect]
     Active Substance: LACTULOSE
     Dates: end: 20170124
  132. LACTULOSE [Suspect]
     Active Substance: LACTULOSE
  133. LACTULOSE [Suspect]
     Active Substance: LACTULOSE
     Dates: end: 20170124
  134. LACTULOSE [Suspect]
     Active Substance: LACTULOSE
     Dates: end: 20170124
  135. LACTULOSE [Suspect]
     Active Substance: LACTULOSE
     Dates: end: 20170124
  136. BISOPROLOL FUMARATE [Suspect]
     Active Substance: BISOPROLOL FUMARATE
     Indication: Product used for unknown indication
     Dosage: 0.5 MG, QD?ROUTE: UNKNOWN, FIRST  ADMINISTRATION DATE 2016
     Dates: start: 2016
  137. BISOPROLOL FUMARATE [Suspect]
     Active Substance: BISOPROLOL FUMARATE
     Indication: Product used for unknown indication
     Dosage: 5 MG, QD?ROUTE: UNKNOWN FIRST  ADMINISTRATION DATE 2016
     Dates: start: 2016
  138. BISOPROLOL FUMARATE [Suspect]
     Active Substance: BISOPROLOL FUMARATE
     Dosage: 5 MG, QD
  139. BISOPROLOL FUMARATE [Suspect]
     Active Substance: BISOPROLOL FUMARATE
     Dosage: 5 MG, QD
  140. SODIUM CHLORIDE [Concomitant]
     Active Substance: SODIUM CHLORIDE
     Indication: Product used for unknown indication
     Dosage: 3 DOSAGE FORM, QD?ROUTE: UNKNOWN
  141. SODIUM CHLORIDE [Concomitant]
     Active Substance: SODIUM CHLORIDE
     Dosage: DAILY?ROUTE: UNKNOWN
  142. SODIUM CHLORIDE [Concomitant]
     Active Substance: SODIUM CHLORIDE
     Dosage: UNK, QD
  143. SODIUM CHLORIDE [Concomitant]
     Active Substance: SODIUM CHLORIDE
     Dosage: 1 DOSAGE FORM, QD
  144. SODIUM CHLORIDE [Concomitant]
     Active Substance: SODIUM CHLORIDE
     Dosage: UNK, QD
  145. SODIUM CHLORIDE [Concomitant]
     Active Substance: SODIUM CHLORIDE
     Dosage: UNK, QD
  146. SODIUM CHLORIDE [Concomitant]
     Active Substance: SODIUM CHLORIDE
     Dosage: UNK, QD
  147. SODIUM CHLORIDE [Concomitant]
     Active Substance: SODIUM CHLORIDE
     Dosage: UNK, QD
  148. SODIUM CHLORIDE [Concomitant]
     Active Substance: SODIUM CHLORIDE
  149. SODIUM CHLORIDE [Concomitant]
     Active Substance: SODIUM CHLORIDE
     Dosage: UNK, QD
  150. SODIUM CHLORIDE [Concomitant]
     Active Substance: SODIUM CHLORIDE
     Dosage: UNK, QD
  151. SODIUM CHLORIDE [Concomitant]
     Active Substance: SODIUM CHLORIDE
  152. SODIUM CHLORIDE [Concomitant]
     Active Substance: SODIUM CHLORIDE
     Dosage: UNK, QD
  153. SODIUM CHLORIDE [Concomitant]
     Active Substance: SODIUM CHLORIDE
     Dosage: UNK, QD
  154. SODIUM CHLORIDE [Concomitant]
     Active Substance: SODIUM CHLORIDE
     Dosage: UNK, QD
  155. SODIUM CHLORIDE [Concomitant]
     Active Substance: SODIUM CHLORIDE
  156. SODIUM CHLORIDE [Concomitant]
     Active Substance: SODIUM CHLORIDE
  157. VALSARTAN [Suspect]
     Active Substance: VALSARTAN
     Indication: Product used for unknown indication
  158. VALSARTAN [Suspect]
     Active Substance: VALSARTAN
  159. CORDAREX [Concomitant]
     Active Substance: AMIODARONE
     Indication: Product used for unknown indication
     Dosage: UNK
  160. CORDAREX [Concomitant]
     Active Substance: AMIODARONE
  161. CORDAREX [Concomitant]
     Active Substance: AMIODARONE
  162. CORDAREX [Concomitant]
     Active Substance: AMIODARONE
  163. CORDAREX [Concomitant]
     Active Substance: AMIODARONE
     Dosage: 200 MG, QD?ROUTE: UNKNOWN
  164. CORDAREX [Concomitant]
     Active Substance: AMIODARONE
  165. CORDAREX [Concomitant]
     Active Substance: AMIODARONE
  166. CORDAREX [Concomitant]
     Active Substance: AMIODARONE
  167. CORDAREX [Concomitant]
     Active Substance: AMIODARONE
  168. CORDAREX [Concomitant]
     Active Substance: AMIODARONE
  169. CORDAREX [Concomitant]
     Active Substance: AMIODARONE
  170. CORDAREX [Concomitant]
     Active Substance: AMIODARONE
  171. CORDAREX [Concomitant]
     Active Substance: AMIODARONE
  172. CORDAREX [Concomitant]
     Active Substance: AMIODARONE
  173. CORDAREX [Concomitant]
     Active Substance: AMIODARONE
  174. CORDAREX [Concomitant]
     Active Substance: AMIODARONE
  175. CORDAREX [Concomitant]
     Active Substance: AMIODARONE
  176. CORDAREX [Concomitant]
     Active Substance: AMIODARONE
  177. ENOXAPARIN [Concomitant]
     Active Substance: ENOXAPARIN
     Indication: Product used for unknown indication
     Dosage: 5 MG, QD
     Dates: start: 2016
  178. ENOXAPARIN [Concomitant]
     Active Substance: ENOXAPARIN
     Indication: Product used for unknown indication
     Dosage: 0.6 MG, QD?ROUTE: UNKNOWN
  179. ENOXAPARIN [Concomitant]
     Active Substance: ENOXAPARIN
     Dosage: 0.5 MG, QD
  180. ENOXAPARIN [Concomitant]
     Active Substance: ENOXAPARIN
     Dosage: 0.6 MG, QD
  181. ENOXAPARIN [Concomitant]
     Active Substance: ENOXAPARIN
     Dosage: 5 MG, QD
  182. ENOXAPARIN [Concomitant]
     Active Substance: ENOXAPARIN
     Dosage: 0.6 MG, QD?ROUTE: UNKNOWN
  183. ENOXAPARIN [Concomitant]
     Active Substance: ENOXAPARIN
  184. HUMIRA [Suspect]
     Active Substance: ADALIMUMAB
     Indication: Rheumatoid arthritis
     Dosage: 40 MG, EVERY 2 WEEKS?FIRST ADMINISTRATION DATE 2012-04-11, LAST ADMIN DATE: 2016-09-27?DURATION: ...
     Route: 058
     Dates: start: 20120411, end: 20160927
  185. HUMIRA [Suspect]
     Active Substance: ADALIMUMAB
     Dosage: ONE DOSAGE FORM, EVERY TWO WEEKS, FIRST ADMINISTRATION DATE 2016-11-15
     Route: 058
  186. HUMIRA [Suspect]
     Active Substance: ADALIMUMAB
     Dosage: 40 MG, QW, FIRST ADMINISTRATION DATE 2016-11-15
     Route: 058
     Dates: start: 20161115
  187. HUMIRA [Suspect]
     Active Substance: ADALIMUMAB
     Dosage: 1 DOSAGE FORM, BIW (2 DF, QW)?ROUTE: UNKNOWN, FIRST ADMINISTRATION DATE 2016-11-15
  188. HUMIRA [Suspect]
     Active Substance: ADALIMUMAB
     Dosage: ONCE A WEEK?FIRST ADMINISTRATION DATE 2016-11-15, LAST ADMIN DATE: 2016-09-27?DURATION: 1631
     Route: 058
     Dates: start: 20161115
  189. HUMIRA [Suspect]
     Active Substance: ADALIMUMAB
     Dosage: 1 DF, 1 DOSAGE FORM, BIW (2 DF, QW)?ROUTE: UNKNOWN FIRST ADMINISTRATION DATE 2016-11-15
     Route: 058
     Dates: start: 20161115
  190. HUMIRA [Suspect]
     Active Substance: ADALIMUMAB
     Route: 058
  191. HUMIRA [Suspect]
     Active Substance: ADALIMUMAB
     Dosage: 1 DOSAGE FORM, Q2W FIRST ADMINISTRATION DATE 2016-09-27
     Route: 058
  192. HUMIRA [Suspect]
     Active Substance: ADALIMUMAB
     Dosage: 1 DOSAGE FORM, Q2W, FIRST ADMINISTRATION DATE 2016-09-27
     Route: 058
     Dates: start: 20160927
  193. HUMIRA [Suspect]
     Active Substance: ADALIMUMAB
     Route: 058
  194. HUMIRA [Suspect]
     Active Substance: ADALIMUMAB
     Dosage: FIRST ADMINISTRATION DATE 2012-04-11, LAST ADMIN DATE:2016-09-27?DURATION:1631?40 MG, QW
     Route: 058
  195. HUMIRA [Suspect]
     Active Substance: ADALIMUMAB
     Dosage: ONCE A WEEK?FIRST ADMINISTRATION DATE 2012-01-11, LAST ADMIN DATE: 2016-09-27?DURATION: 1722
     Route: 058
  196. HUMIRA [Suspect]
     Active Substance: ADALIMUMAB
     Route: 058
  197. HUMIRA [Suspect]
     Active Substance: ADALIMUMAB
     Dosage: 2 DOSAGE FORM, BIW (4DF,QW)?FIRST ADMINISTRATION DATE 2012-01-11, LAST ADMIN DATE: 2016-09-27?DUR...
     Route: 058
     Dates: start: 20120111, end: 20160927
  198. HUMIRA [Suspect]
     Active Substance: ADALIMUMAB
     Dosage: ONCE A WEEK?FIRST ADMINISTRATION DATE 2012-01-11, LAST ADMIN DATE: 2016-09-27?DURATION: 1722
     Route: 058
  199. HUMIRA [Suspect]
     Active Substance: ADALIMUMAB
     Dosage: 40 MILLIGRAM, Q2W?FIRST ADMINISTRATION DATE 2012-01-11, LAST ADMIN DATE: 2016-09-27?DURATION: 1722
     Route: 058
     Dates: start: 20120111
  200. HUMIRA [Suspect]
     Active Substance: ADALIMUMAB
     Route: 058
     Dates: start: 20120411, end: 20160927
  201. HUMIRA [Suspect]
     Active Substance: ADALIMUMAB
     Dosage: 2 DOSAGE FORM, BIW (4DF,QW)?FIRST ADMINISTRATION DATE 2012-01-11, LAST ADMIN DATE: 2016-09-27?DUR...
  202. HUMIRA [Suspect]
     Active Substance: ADALIMUMAB
     Dosage: 2 DOSAGE FORM, BIW (4DF,QW)?FIRST ADMINISTRATION DATE 2012-01-11, LAST ADMIN DATE: 2016-09-27?DUR...
     Route: 058
  203. DICLOFENAC [Suspect]
     Active Substance: DICLOFENAC
     Indication: Product used for unknown indication
  204. DICLOFENAC [Suspect]
     Active Substance: DICLOFENAC
  205. DICLOFENAC [Suspect]
     Active Substance: DICLOFENAC
  206. DICLOFENAC [Suspect]
     Active Substance: DICLOFENAC
  207. DICLOFENAC [Suspect]
     Active Substance: DICLOFENAC
  208. DICLOFENAC [Suspect]
     Active Substance: DICLOFENAC
  209. DICLOFENAC [Suspect]
     Active Substance: DICLOFENAC
  210. DICLOFENAC [Suspect]
     Active Substance: DICLOFENAC
  211. DICLOFENAC [Suspect]
     Active Substance: DICLOFENAC
  212. DICLOFENAC [Suspect]
     Active Substance: DICLOFENAC
     Dosage: 2 DOSAGE FORM, QD?FIRST ADMIN DATE: 2016-10?ROUTE: UNKNOWN
  213. DICLOFENAC [Suspect]
     Active Substance: DICLOFENAC
  214. DICLOFENAC [Suspect]
     Active Substance: DICLOFENAC
  215. DICLOFENAC [Suspect]
     Active Substance: DICLOFENAC
  216. DICLOFENAC [Suspect]
     Active Substance: DICLOFENAC
  217. NADROPARIN CALCIUM [Concomitant]
     Active Substance: NADROPARIN CALCIUM
     Indication: Product used for unknown indication
     Dosage: 5700 IU, QD, SUBDERMAL
     Route: 058
  218. NADROPARIN CALCIUM [Concomitant]
     Active Substance: NADROPARIN CALCIUM
     Dosage: 5700 IU, QD, SUBDERMAL
  219. NADROPARIN CALCIUM [Concomitant]
     Active Substance: NADROPARIN CALCIUM
  220. NADROPARIN CALCIUM [Concomitant]
     Active Substance: NADROPARIN CALCIUM
     Dosage: 5700 IU, QD
     Route: 058
  221. NADROPARIN CALCIUM [Concomitant]
     Active Substance: NADROPARIN CALCIUM
  222. NADROPARIN CALCIUM [Concomitant]
     Active Substance: NADROPARIN CALCIUM
  223. NADROPARIN CALCIUM [Concomitant]
     Active Substance: NADROPARIN CALCIUM
  224. NADROPARIN CALCIUM [Concomitant]
     Active Substance: NADROPARIN CALCIUM
  225. NADROPARIN CALCIUM [Concomitant]
     Active Substance: NADROPARIN CALCIUM
  226. NADROPARIN CALCIUM [Concomitant]
     Active Substance: NADROPARIN CALCIUM
     Dosage: 5700 IU, QD
     Route: 058
  227. NADROPARIN CALCIUM [Concomitant]
     Active Substance: NADROPARIN CALCIUM
  228. FENTANYL [Suspect]
     Active Substance: FENTANYL
     Indication: Product used for unknown indication
     Route: 062
  229. FENTANYL [Suspect]
     Active Substance: FENTANYL
     Route: 062
  230. FENTANYL [Suspect]
     Active Substance: FENTANYL
     Route: 062
  231. FENTANYL [Suspect]
     Active Substance: FENTANYL
     Route: 062
  232. FENTANYL [Suspect]
     Active Substance: FENTANYL
     Route: 062
  233. XIPAMIDE [Suspect]
     Active Substance: XIPAMIDE
     Indication: Product used for unknown indication
  234. XIPAMIDE [Suspect]
     Active Substance: XIPAMIDE
  235. XIPAMIDE [Suspect]
     Active Substance: XIPAMIDE
  236. XIPAMIDE [Suspect]
     Active Substance: XIPAMIDE
  237. XIPAMIDE [Suspect]
     Active Substance: XIPAMIDE
  238. TROSPIUM CHLORIDE [Suspect]
     Active Substance: TROSPIUM CHLORIDE
     Indication: Product used for unknown indication
  239. TROSPIUM CHLORIDE [Suspect]
     Active Substance: TROSPIUM CHLORIDE
     Dosage: 45 MG, QD
  240. TROSPIUM CHLORIDE [Suspect]
     Active Substance: TROSPIUM CHLORIDE
     Dosage: 15 MG, QD, FIRST AND LAST ADMINISTRATION DATE 24 JAN 2017
  241. TORSEMIDE [Suspect]
     Active Substance: TORSEMIDE
     Indication: Product used for unknown indication
     Dosage: 5 MG, QD, FIRST AND LAST ADMINISTRATION DATE 24 JAN 2017
     Route: 048
     Dates: start: 20170124, end: 20170124
  242. TORSEMIDE [Suspect]
     Active Substance: TORSEMIDE
     Dosage: 1 DOSAGE FORM, QD
  243. TORSEMIDE [Suspect]
     Active Substance: TORSEMIDE
     Dosage: UNK UNK, QD,( DOSE: 1, 1X/DAY)
  244. RIOPAN [Concomitant]
     Indication: Product used for unknown indication
     Dosage: 1600 MG, QD
     Route: 048
  245. RIOPAN [Concomitant]
     Dosage: 4800 MG, QD
     Route: 048
  246. HYDROCHLOROTHIAZIDE\LOSARTAN POTASSIUM [Suspect]
     Active Substance: HYDROCHLOROTHIAZIDE\LOSARTAN POTASSIUM
     Indication: Product used for unknown indication
     Dosage: 1 DF, QD?ROUTE: UNKNOWN, FIRST ADMINISTRATION DATE 2016
     Dates: start: 2016
  247. HYDROCHLOROTHIAZIDE\LOSARTAN POTASSIUM [Suspect]
     Active Substance: HYDROCHLOROTHIAZIDE\LOSARTAN POTASSIUM
     Dosage: 1 DOSAGE FORM, QD?ROUTE: UNKNOWN
  248. HYDROCHLOROTHIAZIDE\LOSARTAN POTASSIUM [Suspect]
     Active Substance: HYDROCHLOROTHIAZIDE\LOSARTAN POTASSIUM
     Dosage: UNK, UNK, QD (100/25 MG)?ROUTE: UNKNOWN?FIRST ADMIN DATE: 2016
  249. TROSPIUM CHLORIDE [Suspect]
     Active Substance: TROSPIUM CHLORIDE
     Indication: Product used for unknown indication
     Dosage: 15 MG, QD
     Dates: start: 20170124, end: 20170124
  250. CERISA [Suspect]
     Active Substance: SULFACETAMIDE SODIUM\SULFUR
     Indication: Product used for unknown indication
  251. CERISA [Suspect]
     Active Substance: SULFACETAMIDE SODIUM\SULFUR
  252. TORSEMIDE [Suspect]
     Active Substance: TORSEMIDE
     Indication: Product used for unknown indication
     Dosage: 15.000MG QD
     Dates: start: 20170124, end: 20170124
  253. TORSEMIDE [Suspect]
     Active Substance: TORSEMIDE
     Indication: Product used for unknown indication
     Dosage: 45 MG, QD, FIRST AND LAST ADMINISTRATION DATE 24 JAN 2017
  254. TORSEMIDE [Suspect]
     Active Substance: TORSEMIDE
     Dosage: 1 DF, QD
     Route: 048
  255. METOPROLOL SUCCINATE [Suspect]
     Active Substance: METOPROLOL SUCCINATE
     Indication: Product used for unknown indication
     Dates: start: 20170124, end: 20170124
  256. METOPROLOL SUCCINATE [Suspect]
     Active Substance: METOPROLOL SUCCINATE
     Indication: Product used for unknown indication
     Route: 048
  257. METOPROLOL SUCCINATE [Suspect]
     Active Substance: METOPROLOL SUCCINATE
  258. LOSARTAN [Suspect]
     Active Substance: LOSARTAN
     Indication: Product used for unknown indication
  259. LOSARTAN [Suspect]
     Active Substance: LOSARTAN
     Dosage: 1 DOSAGE FORM, QD?FIRST ADMIN DATE: 2016?ROUTE: UNKNOWN
  260. TROSPIUM CHLORIDE [Suspect]
     Active Substance: TROSPIUM CHLORIDE
     Indication: Product used for unknown indication
     Dosage: 45 MG, QD, FIRST AND LAST ADMINISTRATION DATE 24 JAN 2017
     Route: 048
  261. TROSPIUM CHLORIDE [Suspect]
     Active Substance: TROSPIUM CHLORIDE
     Dosage: 15 MILLIGRAM, QD?ROUTE: UNKNOWN,
     Dates: start: 20170124, end: 20170124
  262. TROSPIUM CHLORIDE [Suspect]
     Active Substance: TROSPIUM CHLORIDE
     Dosage: 45 MG, QD, FIRST AND LAST ADMINISTRATION DATE 24 JAN 2017
     Route: 048
  263. TROSPIUM CHLORIDE [Suspect]
     Active Substance: TROSPIUM CHLORIDE
     Dosage: 15 MG, QD?ROUTE: UNKNOWN, FIRST AND LAST ADMINISTRATION DATE 24 JAN 2017
  264. TROSPIUM CHLORIDE [Suspect]
     Active Substance: TROSPIUM CHLORIDE
  265. TROSPIUM CHLORIDE [Suspect]
     Active Substance: TROSPIUM CHLORIDE
  266. TROSPIUM CHLORIDE [Suspect]
     Active Substance: TROSPIUM CHLORIDE
     Dosage: 15 MILLIGRAM, QD?ROUTE: UNKNOWN

REACTIONS (54)
  - Anuria [Recovered/Resolved]
  - Tricuspid valve incompetence [Unknown]
  - Escherichia infection [Unknown]
  - Cardiovascular disorder [Unknown]
  - Oedema peripheral [Unknown]
  - Acute kidney injury [Unknown]
  - Arterial haemorrhage [Recovered/Resolved]
  - Arthralgia [Unknown]
  - Groin pain [Unknown]
  - Inflammatory marker increased [Recovered/Resolved]
  - Eructation [Unknown]
  - Fall [Recovered/Resolved]
  - Vomiting [Unknown]
  - Aortic valve stenosis [Unknown]
  - Postoperative wound infection [Recovered/Resolved]
  - Dyspnoea [Unknown]
  - Diverticulum intestinal [Unknown]
  - Abdominal discomfort [Unknown]
  - Cardiogenic shock [Unknown]
  - Coronary artery disease [Unknown]
  - Hyponatraemia [Unknown]
  - Femoral hernia incarcerated [Recovered/Resolved]
  - Aortic arteriosclerosis [Unknown]
  - Myocardial infarction [Recovered/Resolved]
  - Decreased appetite [Unknown]
  - Urinary retention [Unknown]
  - Impaired healing [Recovered/Resolved]
  - Hepatic cyst [Unknown]
  - Myelodysplastic syndrome [Unknown]
  - Hiatus hernia [Unknown]
  - Gait disturbance [Recovering/Resolving]
  - General physical health deterioration [Unknown]
  - Haemarthrosis [Unknown]
  - Wound dehiscence [Recovered/Resolved]
  - Hyperkalaemia [Unknown]
  - Lymphatic fistula [Recovered/Resolved]
  - Seroma [Unknown]
  - Osteopenia [Unknown]
  - Pancreatic steatosis [Unknown]
  - Left ventricular dysfunction [Recovered/Resolved]
  - Peripheral swelling [Recovered/Resolved]
  - Urinary tract infection [Recovering/Resolving]
  - Aplastic anaemia [Unknown]
  - Wound infection pseudomonas [Recovering/Resolving]
  - Syncope [Unknown]
  - Mitral valve incompetence [Unknown]
  - Pulmonary hypertension [Recovering/Resolving]
  - Tachyarrhythmia [Unknown]
  - Anaemia [Recovered/Resolved]
  - Haematuria [Recovering/Resolving]
  - Faecaloma [Unknown]
  - Dyspepsia [Unknown]
  - Gastrointestinal haemorrhage [Recovered/Resolved]
  - Joint dislocation [Recovered/Resolved]

NARRATIVE: CASE EVENT DATE: 20160928
